FAERS Safety Report 6735702-5 (Version None)
Quarter: 2010Q2

REPORT INFORMATION
  Report Type: 
  Country: None (occurrence: None)
  Receive Date: 20100521
  Receipt Date: 20100518
  Transmission Date: 20101027
  Serious: Yes (Death, Life-Threatening, Hospitalization)
  Sender: FDA-Public Use
  Company Number: FR-SANOFI-AVENTIS-2010SA028274

PATIENT
  Age: 64 Year
  Sex: Male

DRUGS (17)
  1. LOVENOX [Suspect]
     Indication: THROMBOSIS PROPHYLAXIS
     Route: 058
     Dates: start: 20091201, end: 20091203
  2. TARGOCID [Suspect]
     Route: 042
     Dates: start: 20091127, end: 20091202
  3. PERFALGAN [Suspect]
     Route: 065
     Dates: start: 20091125
  4. SPECIAFOLDINE [Concomitant]
     Route: 048
     Dates: start: 20091127
  5. CLAFORAN [Concomitant]
     Route: 042
     Dates: start: 20091215
  6. LASIX [Concomitant]
     Route: 042
     Dates: start: 20091214
  7. MOPRAL [Concomitant]
     Indication: PROPHYLAXIS AGAINST GASTROINTESTINAL ULCER
     Route: 048
  8. BISOPROLOL FUMARATE [Concomitant]
     Route: 048
  9. FLUDEX [Concomitant]
     Route: 048
     Dates: end: 20091214
  10. VANCOMYCIN HCL [Concomitant]
     Route: 042
     Dates: start: 20091125, end: 20091127
  11. GENTAMICIN [Concomitant]
     Route: 042
     Dates: start: 20091125, end: 20091130
  12. VITAMIN K TAB [Concomitant]
     Indication: VITAMIN K DEFICIENCY
     Route: 042
     Dates: start: 20091202, end: 20091207
  13. FOSFOMYCIN [Concomitant]
     Route: 042
     Dates: start: 20091215
  14. DIFFU K [Concomitant]
     Route: 048
     Dates: start: 20091205
  15. LACTEOL [Concomitant]
     Route: 048
     Dates: start: 20091210, end: 20091214
  16. SERESTA [Concomitant]
     Indication: ANXIETY
     Route: 048
     Dates: start: 20091208, end: 20091214
  17. MOTILIUM [Concomitant]
     Indication: NAUSEA
     Route: 048
     Dates: start: 20091214

REACTIONS (2)
  - HAEMATURIA [None]
  - THROMBOCYTOPENIA [None]
